FAERS Safety Report 8845275 (Version 1)
Quarter: 2012Q4

REPORT INFORMATION
  Report Type: 
  Country: US (occurrence: US)
  Receive Date: 20121017
  Receipt Date: 20121017
  Transmission Date: 20130627
  Serious: Yes (Other)
  Sender: FDA-Public Use
  Company Number: US-PFIZER INC-2012254423

PATIENT
  Age: 38 Year
  Sex: Female
  Weight: 67.1 kg

DRUGS (2)
  1. XALKORI [Suspect]
     Indication: LUNG NEOPLASM MALIGNANT
     Dosage: 250 mg, 2x/day
     Route: 048
  2. XALKORI [Suspect]
     Dosage: 250 mg, 1x/day
     Route: 048

REACTIONS (5)
  - Weight increased [Unknown]
  - Vomiting [Recovered/Resolved]
  - Diarrhoea [Recovered/Resolved]
  - Halo vision [Not Recovered/Not Resolved]
  - Increased appetite [Unknown]
